FAERS Safety Report 6689410-X (Version None)
Quarter: 2010Q2

REPORT INFORMATION
  Report Type: 
  Country: None (occurrence: None)
  Receive Date: 20100420
  Receipt Date: 20100412
  Transmission Date: 20101027
  Serious: Yes (Other)
  Sender: FDA-Public Use
  Company Number: US-ABBOTT-10P-163-0637495-00

PATIENT
  Sex: Female
  Weight: 59.02 kg

DRUGS (4)
  1. NIASPAN [Suspect]
     Indication: BLOOD CHOLESTEROL INCREASED
     Dates: start: 20091001, end: 20100409
  2. NIASPAN [Suspect]
     Dates: start: 20100409
  3. LOVAZA [Concomitant]
     Indication: DRUG USE FOR UNKNOWN INDICATION
  4. WELCHOL [Concomitant]
     Indication: HYPERTENSION

REACTIONS (2)
  - BREAST CANCER [None]
  - PRURITUS [None]
